FAERS Safety Report 17696168 (Version 4)
Quarter: 2021Q2

REPORT INFORMATION
  Report Type: Spontaneous
  Country: US (occurrence: US)
  Receive Date: 20200423
  Receipt Date: 20210514
  Transmission Date: 20210716
  Serious: Yes (Hospitalization, Other)
  Sender: FDA-Public Use
  Company Number: US-NAPPMUNDI-USA-2020-0151133

PATIENT
  Sex: Male

DRUGS (2)
  1. MS CONTIN [Suspect]
     Active Substance: MORPHINE SULFATE
     Indication: PRODUCT USED FOR UNKNOWN INDICATION
     Dosage: UNKNOWN
     Route: 048
  2. OXYCONTIN [Suspect]
     Active Substance: OXYCODONE HYDROCHLORIDE
     Indication: PRODUCT USED FOR UNKNOWN INDICATION
     Dosage: 80 MG, UNK
     Route: 048

REACTIONS (25)
  - Surgery [Unknown]
  - Personality change [Unknown]
  - Drug dependence [Recovered/Resolved]
  - Overdose [Unknown]
  - Drug abuse [Unknown]
  - Emotional poverty [Unknown]
  - Nervousness [Unknown]
  - Hyperhidrosis [Unknown]
  - Loss of libido [Unknown]
  - Amnesia [Unknown]
  - Sensory loss [Unknown]
  - Anger [Unknown]
  - Frustration tolerance decreased [Unknown]
  - Suicidal ideation [Unknown]
  - Drug withdrawal syndrome [Unknown]
  - Hypersomnia [Unknown]
  - Illness [Unknown]
  - Myoclonus [Unknown]
  - Memory impairment [Unknown]
  - Unevaluable event [Unknown]
  - Drug tolerance [Unknown]
  - Disturbance in attention [Unknown]
  - General physical health deterioration [Unknown]
  - Impaired driving ability [Unknown]
  - Apraxia [Unknown]
